FAERS Safety Report 7611917-9 (Version None)
Quarter: 2011Q3

REPORT INFORMATION
  Report Type: 
  Country: None (occurrence: None)
  Receive Date: 20110715
  Receipt Date: 20110708
  Transmission Date: 20111222
  Serious: Yes (Other)
  Sender: FDA-Public Use
  Company Number: US-PFIZER INC-2011127438

PATIENT
  Sex: Female
  Weight: 54 kg

DRUGS (12)
  1. FISH OIL [Concomitant]
     Dosage: 1000 MG, 1X/DAY
  2. PROTONIX [Suspect]
     Indication: GASTROOESOPHAGEAL REFLUX DISEASE
     Dosage: 20 MG, UNK
     Dates: start: 20050101
  3. MIRENA [Concomitant]
     Dosage: 20 UG, 1X/DAY
  4. CALCIUM CITRATE/COLECALCIFEROL/MAGNESIUM CITRATE [Concomitant]
     Dosage: 1200 MG, DAILY
  5. LACTOBACILLUS ACIDOPHILUS [Concomitant]
     Indication: HYPERTENSION
     Dosage: 1 DF, 2X/DAY
  6. VITAMIN D [Concomitant]
     Dosage: UNK
  7. ZIAC [Concomitant]
     Dosage: UNK
  8. OMEPRAZOLE [Suspect]
     Indication: GASTROOESOPHAGEAL REFLUX DISEASE
     Dosage: 20 MG, UNK
     Dates: start: 20091112, end: 20110201
  9. MULTI-VITAMINS [Concomitant]
  10. ACIPHEX [Concomitant]
     Dosage: 20 MG, 1X/DAY
  11. BISOPROLOL FUMARATE AND HYDROCHLOROTHIAZIDE [Suspect]
     Indication: HYPERTENSION
     Dosage: 10/6.25 MG, DAILY, 90DAYS, 3 FILLS
     Dates: end: 20110609
  12. CLARITIN [Concomitant]
     Dosage: 10 MG, AS NEEDED

REACTIONS (6)
  - GASTROENTERITIS BACTERIAL [None]
  - ABDOMINAL PAIN LOWER [None]
  - BACK PAIN [None]
  - CONSTIPATION [None]
  - DYSPEPSIA [None]
  - FLATULENCE [None]
